FAERS Safety Report 7554585-7 (Version None)
Quarter: 2011Q2

REPORT INFORMATION
  Report Type: 
  Country: None (occurrence: None)
  Receive Date: 20110617
  Receipt Date: 20110610
  Transmission Date: 20111010
  Serious: Yes (Other)
  Sender: FDA-Public Use
  Company Number: US-ROCHE-782455

PATIENT
  Sex: Female

DRUGS (2)
  1. PEGASYS [Suspect]
     Indication: HEPATITIS C
     Dosage: FORM : PFS
     Route: 065
     Dates: start: 20110608
  2. COPEGUS [Suspect]
     Indication: HEPATITIS C
     Dosage: DIVIDED DOSE. DRUG ALSO REPORTED AS : RIBASPHERE
     Route: 065
     Dates: start: 20110608

REACTIONS (9)
  - FATIGUE [None]
  - ALOPECIA [None]
  - RETCHING [None]
  - NAUSEA [None]
  - DYSPNOEA [None]
  - PAROSMIA [None]
  - HAEMOPTYSIS [None]
  - DYSGEUSIA [None]
  - VOMITING [None]
